FAERS Safety Report 7001550-4 (Version None)
Quarter: 2010Q3

REPORT INFORMATION
  Report Type: 
  Country: None (occurrence: None)
  Receive Date: 20100920
  Receipt Date: 20100909
  Transmission Date: 20110219
  Serious: Yes (Other)
  Sender: FDA-Public Use
  Company Number: PHHY2010US30517

PATIENT
  Sex: Male

DRUGS (14)
  1. GLEEVEC [Suspect]
     Indication: CHRONIC MYELOID LEUKAEMIA
     Dosage: 400 MG, UNK
     Route: 048
  2. PROTONIX [Suspect]
  3. PRILOSEC [Suspect]
     Dosage: UNK
     Dates: start: 20091101
  4. ZANTAC [Suspect]
  5. CARTIA XT [Concomitant]
     Dosage: 180 MG, BID
  6. LASIX [Concomitant]
     Dosage: 40 MG, QD
  7. METFORMIN [Concomitant]
     Dosage: 500 MG, UNK
  8. ALLOPURINOL [Concomitant]
     Dosage: 100 MG, BID
  9. COLCHICINE [Concomitant]
     Dosage: 0.03 MG, QD
  10. ALKA-SELTZER [Concomitant]
  11. PEPTO-BISMOL [Concomitant]
  12. WARFARIN SODIUM [Concomitant]
  13. METOPROLOL [Concomitant]
  14. GAS-X [Concomitant]

REACTIONS (7)
  - ABDOMINAL PAIN UPPER [None]
  - DIABETES MELLITUS [None]
  - GASTRIC OPERATION [None]
  - GASTROOESOPHAGEAL REFLUX DISEASE [None]
  - GOUT [None]
  - IMPAIRED GASTRIC EMPTYING [None]
  - NAUSEA [None]
